FAERS Safety Report 6027555-8 (Version None)
Quarter: 2009Q1

REPORT INFORMATION
  Report Type: 
  Country: None (occurrence: None)
  Receive Date: 20090105
  Receipt Date: 20081223
  Transmission Date: 20090719
  Serious: Yes (Death)
  Sender: FDA-Public Use
  Company Number: US-ELI_LILLY_AND_COMPANY-US200806001247

PATIENT
  Sex: Female
  Weight: 55.329 kg

DRUGS (13)
  1. CYMBALTA [Suspect]
     Indication: DEPRESSION
     Dosage: 90 MG, DAILY (1/D)
     Route: 048
  2. OXYMORPHONE HCL [Concomitant]
     Indication: PAIN IN EXTREMITY
     Dosage: 10 MG, 2/D
     Route: 048
     Dates: start: 20080201
  3. LORCET-HD [Concomitant]
     Indication: PAIN
     Dosage: 10 MG, AS NEEDED
  4. LANTUS [Concomitant]
     Dosage: 40 U, EACH MORNING
  5. NOVOLOG [Concomitant]
     Indication: TYPE 1 DIABETES MELLITUS
     Dosage: 1 D/F, UNK
  6. ZONEGRAN [Concomitant]
     Dosage: 100 MG, 2/D
     Route: 048
  7. TRILEPTAL [Concomitant]
     Indication: NEURALGIA
     Dosage: 300 MG, 2/D
  8. XANAX [Concomitant]
     Indication: ANXIETY
     Dosage: 0.5 MG, 2/D
  9. PLAVIX [Concomitant]
     Indication: THROMBOSIS PROPHYLAXIS
     Dosage: 75 MG, DAILY (1/D)
     Route: 048
  10. PREVACID [Concomitant]
     Indication: GASTROOESOPHAGEAL REFLUX DISEASE
     Dosage: 30 MG, 2/D
  11. REGLAN [Concomitant]
     Indication: IMPAIRED GASTRIC EMPTYING
     Dosage: 10 MG, 4/D
  12. HYZAAR [Concomitant]
     Indication: HYPERTENSION
     Dosage: 1 D/F, DAILY (1/D)
  13. LYRICA [Concomitant]
     Indication: FIBROMYALGIA
     Dosage: 50 MG, 3/D
     Route: 048

REACTIONS (9)
  - CONTUSION [None]
  - DRUG TOXICITY [None]
  - EDENTULOUS [None]
  - EXCORIATION [None]
  - INSOMNIA [None]
  - MALAISE [None]
  - PAIN IN EXTREMITY [None]
  - RESTLESSNESS [None]
  - VOMITING [None]
